FAERS Safety Report 19199679 (Version 4)
Quarter: 2022Q4

REPORT INFORMATION
  Report Type: Report from Study
  Country: CA (occurrence: CA)
  Receive Date: 20210430
  Receipt Date: 20221014
  Transmission Date: 20230113
  Serious: Yes (Hospitalization, Other)
  Sender: FDA-Public Use
  Company Number: PHHY2017CA074765

PATIENT
  Age: 51 Year
  Sex: Male

DRUGS (10)
  1. COSENTYX [Suspect]
     Active Substance: SECUKINUMAB
     Indication: Ankylosing spondylitis
     Dosage: 300 MG, QMO
     Route: 058
     Dates: start: 20170420, end: 20170511
  2. COSENTYX [Suspect]
     Active Substance: SECUKINUMAB
     Dosage: 150 MG, QMO
     Route: 058
     Dates: start: 20170518
  3. COSENTYX [Suspect]
     Active Substance: SECUKINUMAB
     Dosage: 150 MG, QMO
     Route: 058
     Dates: start: 2017
  4. COSENTYX [Suspect]
     Active Substance: SECUKINUMAB
     Dosage: 150 MG, QMO
     Route: 058
     Dates: start: 20170618
  5. COSENTYX [Suspect]
     Active Substance: SECUKINUMAB
     Dosage: 300 MG, QMO
     Route: 058
     Dates: start: 20180320
  6. COSENTYX [Suspect]
     Active Substance: SECUKINUMAB
     Dosage: 300 MG, QMO
     Route: 058
     Dates: start: 20220916
  7. PREDNISONE [Concomitant]
     Active Substance: PREDNISONE
     Indication: Product used for unknown indication
     Dosage: UNK UNK, QD
     Route: 065
  8. TYLENOL [Concomitant]
     Active Substance: ACETAMINOPHEN
     Indication: Product used for unknown indication
     Dosage: UNK
     Route: 065
  9. SULFASALAZINE [Concomitant]
     Active Substance: SULFASALAZINE
     Indication: Product used for unknown indication
     Dosage: UNK
     Route: 065
  10. METHOTREXATE [Concomitant]
     Active Substance: METHOTREXATE
     Indication: Product used for unknown indication
     Dosage: UNK
     Route: 065

REACTIONS (23)
  - Brain neoplasm [Unknown]
  - Deafness [Unknown]
  - Neuropathy peripheral [Unknown]
  - Intracranial mass [Unknown]
  - Injection site reaction [Recovered/Resolved]
  - Injection site warmth [Recovered/Resolved]
  - Injection site vesicles [Recovered/Resolved]
  - Injection site discolouration [Recovered/Resolved]
  - Headache [Unknown]
  - Pain [Unknown]
  - Musculoskeletal stiffness [Unknown]
  - Insomnia [Unknown]
  - Arthropathy [Unknown]
  - Arthritis [Recovering/Resolving]
  - Fatigue [Unknown]
  - Influenza like illness [Unknown]
  - Secretion discharge [Unknown]
  - Cough [Unknown]
  - Pyrexia [Unknown]
  - Nasopharyngitis [Unknown]
  - Injection site haemorrhage [Recovered/Resolved]
  - Product dose omission issue [Unknown]
  - Therapeutic product effect incomplete [Unknown]

NARRATIVE: CASE EVENT DATE: 20170501
